FAERS Safety Report 6510038-6 (Version None)
Quarter: 2009Q4

REPORT INFORMATION
  Report Type: 
  Country: None (occurrence: None)
  Receive Date: 20091222
  Receipt Date: 20091214
  Transmission Date: 20100525
  Serious: Yes (Other)
  Sender: FDA-Public Use
  Company Number: SE-ABBOTT-09P-150-0615256-00

PATIENT
  Sex: Male

DRUGS (1)
  1. HUMIRA [Suspect]
     Indication: CROHN'S DISEASE
     Dosage: ONLY ONE DOSE WAS GIVEN
     Dates: start: 20091125, end: 20091125

REACTIONS (4)
  - DEAFNESS UNILATERAL [None]
  - DYSPNOEA [None]
  - PRURITUS [None]
  - RASH [None]
